FAERS Safety Report 6181363-6 (Version None)
Quarter: 2009Q2

REPORT INFORMATION
  Report Type: 
  Country: None (occurrence: None)
  Receive Date: 20090506
  Receipt Date: 20090430
  Transmission Date: 20091009
  Serious: Yes (Other)
  Sender: FDA-Public Use
  Company Number: US-ELI_LILLY_AND_COMPANY-US200901001660

PATIENT
  Sex: Male
  Weight: 158.73 kg

DRUGS (8)
  1. BYETTA [Suspect]
     Indication: TYPE 2 DIABETES MELLITUS
     Dosage: 5 UG, 2/D
     Route: 065
     Dates: start: 20070906, end: 20071004
  2. BYETTA [Suspect]
     Dosage: 10 UG, 2/D
     Route: 065
     Dates: start: 20071004, end: 20080924
  3. ENALAPRIL MALEATE [Concomitant]
     Dosage: 10 MG, UNKNOWN
     Route: 048
     Dates: start: 20080801
  4. ACTOS [Concomitant]
     Dosage: UNK, 3/D
     Route: 065
     Dates: start: 20071001
  5. AMARYL [Concomitant]
     Dosage: 2 MG, DAILY (1/D)
     Route: 065
     Dates: start: 20071001, end: 20080901
  6. METFORMIN HCL [Concomitant]
     Dosage: UNK, 3/D
     Route: 065
     Dates: start: 20071001
  7. FISH OIL [Concomitant]
     Indication: HYPERLIPIDAEMIA
     Dosage: 2000 MG, DAILY (1/D)
     Route: 065
  8. ERGOCALCIFEROL [Concomitant]
     Dosage: 1000 MG, DAILY (1/D)
     Route: 065

REACTIONS (2)
  - PANCREATITIS [None]
  - WEIGHT INCREASED [None]
